FAERS Safety Report 9587251 (Version 2)
Quarter: 2013Q4

REPORT INFORMATION
  Report Type: Spontaneous
  Country: GB (occurrence: GB)
  Receive Date: 20131003
  Receipt Date: 20131003
  Transmission Date: 20140711
  Serious: Yes (Hospitalization)
  Sender: FDA-Public Use
  Company Number: GB-ABBVIE-13P-167-1133976-00

PATIENT
  Age: 30 Year
  Sex: Male
  Weight: 66 kg

DRUGS (7)
  1. HUMIRA [Suspect]
     Indication: CROHN^S DISEASE
     Dates: start: 20130225
  2. HUMIRA [Suspect]
  3. HUMIRA [Suspect]
     Dosage: ALTERNATE WEEKS
     Route: 058
  4. VITAMIN B12 [Concomitant]
     Indication: PRODUCT USED FOR UNKNOWN INDICATION
     Route: 058
  5. LANSOPRAZOLE [Concomitant]
     Indication: PRODUCT USED FOR UNKNOWN INDICATION
     Dosage: OD
  6. AZATHIOPINE [Concomitant]
     Indication: PRODUCT USED FOR UNKNOWN INDICATION
     Dosage: OD
  7. FLUOXETINE [Concomitant]
     Dosage: OD

REACTIONS (6)
  - Pyrexia [Unknown]
  - Cytomegalovirus infection [Recovered/Resolved]
  - Hyperhidrosis [Unknown]
  - Influenza like illness [Unknown]
  - Decreased appetite [Unknown]
  - Hypersensitivity [Unknown]
